FAERS Safety Report 8457066 (Version 2)
Quarter: 2012Q4

REPORT INFORMATION
  Report Type: 
  Country: US (occurrence: US)
  Receive Date: 20120313
  Receipt Date: 20121211
  Transmission Date: 20130627
  Serious: No
  Sender: FDA-Public Use
  Company Number: PHEH2012US005409

PATIENT
  Sex: Female

DRUGS (6)
  1. TASIGNA [Suspect]
     Indication: CHRONIC MYELOID LEUKAEMIA
     Dosage: 400 mg, BID
     Route: 048
     Dates: start: 20091111
  2. HYDROCODONE W/APAP [Concomitant]
     Dosage: UNK UKN, UNK
  3. LORAZEPAM [Concomitant]
     Dosage: UNK UKN, UNK
  4. CENESTIN [Concomitant]
     Dosage: UNK UKN, UNK
  5. PROPRANOLOL [Concomitant]
     Dosage: UNK UKN, UNK
  6. PHENYTOIN [Concomitant]
     Dosage: UNK UKN, UNK

REACTIONS (5)
  - Myalgia [Not Recovered/Not Resolved]
  - Influenza like illness [Not Recovered/Not Resolved]
  - Nausea [Not Recovered/Not Resolved]
  - Diarrhoea [Not Recovered/Not Resolved]
  - Vomiting [Not Recovered/Not Resolved]
